FAERS Safety Report 15042897 (Version 2)
Quarter: 2018Q3

REPORT INFORMATION
  Report Type: Spontaneous
  Country: GB (occurrence: GB)
  Receive Date: 20180621
  Receipt Date: 20180831
  Transmission Date: 20181010
  Serious: Yes (Other)
  Sender: FDA-Public Use
  Company Number: GB-TAKEDA-2018TEU003917

PATIENT
  Age: 31 Year
  Sex: Male

DRUGS (5)
  1. LISINOPRIL. [Concomitant]
     Active Substance: LISINOPRIL
     Dosage: 5 MG, QD
  2. ALOGLIPTIN. [Suspect]
     Active Substance: ALOGLIPTIN
     Indication: DIABETES MELLITUS
     Dosage: 25 MG, QD
     Route: 048
     Dates: start: 20180520
  3. METFORMIN [Concomitant]
     Active Substance: METFORMIN HYDROCHLORIDE
     Dosage: 2000 MG, QD
  4. AMITRIPTYLINE [Concomitant]
     Active Substance: AMITRIPTYLINE
     Dosage: 20 MG, QD
  5. TRAMADOL. [Concomitant]
     Active Substance: TRAMADOL
     Dosage: UNK

REACTIONS (2)
  - Suicidal ideation [Recovered/Resolved]
  - Hallucination, auditory [Recovered/Resolved]

NARRATIVE: CASE EVENT DATE: 20180520
